FAERS Safety Report 6328416-7 (Version None)
Quarter: 2009Q3

REPORT INFORMATION
  Report Type: 
  Country: None (occurrence: None)
  Receive Date: 20090825
  Receipt Date: 20090316
  Transmission Date: 20100115
  Serious: No
  Sender: FDA-Public Use
  Company Number: US-ABBOTT-09P-163-0563008-00

PATIENT
  Sex: Female
  Weight: 58.112 kg

DRUGS (2)
  1. SYNTHROID [Suspect]
     Indication: HYPOTHYROIDISM
     Route: 048
  2. YAZ [Concomitant]
     Indication: CONTRACEPTION

REACTIONS (1)
  - INSOMNIA [None]
